FAERS Safety Report 12841650 (Version 5)
Quarter: 2017Q1

REPORT INFORMATION
  Report Type: Spontaneous
  Country: CA (occurrence: CA)
  Receive Date: 20161012
  Receipt Date: 20170124
  Transmission Date: 20170428
  Serious: Yes (Other)
  Sender: FDA-Public Use
  Company Number: CA-PFIZER INC-2016466671

PATIENT
  Age: 68 Year
  Sex: Female

DRUGS (3)
  1. METHOTREXATE SODIUM. [Suspect]
     Active Substance: METHOTREXATE SODIUM
     Indication: RHEUMATOID ARTHRITIS
     Dosage: UNK
     Dates: start: 20160630, end: 20160915
  2. TRAZODONE [Concomitant]
     Active Substance: TRAZODONE HYDROCHLORIDE
     Dosage: UNK
  3. NOVO-GESIC [Concomitant]
     Dosage: UNK

REACTIONS (4)
  - Monocytosis [Unknown]
  - Neutropenia [Unknown]
  - Nausea [Unknown]
  - Nail infection [Unknown]

NARRATIVE: CASE EVENT DATE: 2016
